FAERS Safety Report 7961331-1 (Version None)
Quarter: 2011Q4

REPORT INFORMATION
  Report Type: 
  Country: None (occurrence: None)
  Receive Date: 20111207
  Receipt Date: 20111129
  Transmission Date: 20120403
  Serious: Yes (Death)
  Sender: FDA-Public Use
  Company Number: JP-TEVA-311501ISR

PATIENT

DRUGS (2)
  1. FLUOROURACIL [Suspect]
     Indication: OESOPHAGEAL CARCINOMA
  2. CISPLATIN [Suspect]
     Indication: OESOPHAGEAL CARCINOMA

REACTIONS (1)
  - OESOPHAGOBRONCHIAL FISTULA [None]
